FAERS Safety Report 12196884 (Version 1)
Quarter: 2016Q1

REPORT INFORMATION
  Report Type: Spontaneous
  Country: FR (occurrence: FR)
  Receive Date: 20160321
  Receipt Date: 20160321
  Transmission Date: 20160526
  Serious: Yes (Death, Hospitalization, Other)
  Sender: FDA-Public Use
  Company Number: FR-ASTRAZENECA-2016SE30236

PATIENT
  Age: 20 Year
  Sex: Female

DRUGS (6)
  1. FLUOXETINE [Suspect]
     Active Substance: FLUOXETINE HYDROCHLORIDE
     Route: 065
     Dates: start: 2015
  2. THERALENE [Suspect]
     Active Substance: TRIMEPRAZINE
     Route: 065
     Dates: start: 201503
  3. LOXAPAC [Suspect]
     Active Substance: LOXAPINE SUCCINATE
     Route: 065
     Dates: start: 201503
  4. DESOGESTREL [Suspect]
     Active Substance: DESOGESTREL
     Route: 065
  5. XEROQUEL [Suspect]
     Active Substance: QUETIAPINE FUMARATE
     Indication: PRODUCT USED FOR UNKNOWN INDICATION
     Route: 048
     Dates: start: 201503
  6. ZOLPIDEM [Suspect]
     Active Substance: ZOLPIDEM\ZOLPIDEM TARTRATE
     Route: 065

REACTIONS (6)
  - Cardio-respiratory arrest [Unknown]
  - Shock [Unknown]
  - Acidosis [Unknown]
  - Seizure [Fatal]
  - Multiple organ dysfunction syndrome [Unknown]
  - Abdominal distension [Unknown]

NARRATIVE: CASE EVENT DATE: 20151224
